FAERS Safety Report 18163576 (Version 2)
Quarter: 2020Q3

REPORT INFORMATION
  Report Type: Spontaneous
  Country: US (occurrence: US)
  Receive Date: 20200818
  Receipt Date: 20200831
  Transmission Date: 20201103
  Serious: Yes (Death, Other)
  Sender: FDA-Public Use
  Company Number: US-GILEAD-2020-0490618

PATIENT
  Age: 15 Year
  Sex: Female

DRUGS (9)
  1. FAMOTIDINE. [Concomitant]
     Active Substance: FAMOTIDINE
  2. DEXAMETHASONE. [Concomitant]
     Active Substance: DEXAMETHASONE
  3. CLINDAMYCIN. [Concomitant]
     Active Substance: CLINDAMYCIN
  4. REMDESIVIR. [Suspect]
     Active Substance: REMDESIVIR
     Indication: COVID-19
     Dosage: UNK
     Route: 042
     Dates: start: 20200716, end: 20200726
  5. ACETAMINOPHEN. [Concomitant]
     Active Substance: ACETAMINOPHEN
     Indication: PYREXIA
     Dosage: UNK
     Dates: start: 20200715
  6. CEFTRIAXONE. [Concomitant]
     Active Substance: CEFTRIAXONE
  7. REMDESIVIR. [Suspect]
     Active Substance: REMDESIVIR
     Dosage: 200 MG
     Route: 042
     Dates: start: 20200717, end: 20200717
  8. ALBUTEROL. [Concomitant]
     Active Substance: ALBUTEROL
  9. MOTRIN [Concomitant]
     Active Substance: IBUPROFEN

REACTIONS (4)
  - Flushing [Recovered/Resolved]
  - Infusion related reaction [Recovered/Resolved]
  - COVID-19 [Fatal]
  - Respiratory failure [Not Recovered/Not Resolved]

NARRATIVE: CASE EVENT DATE: 20200719
